FAERS Safety Report 5239688-4 (Version None)
Quarter: 2007Q1

REPORT INFORMATION
  Report Type: 
  Country: None (occurrence: None)
  Receive Date: 20070216
  Receipt Date: 20070205
  Transmission Date: 20070707
  Serious: Yes (Other)
  Sender: FDA-Public Use
  Company Number: PHEH2007US01669

PATIENT
  Age: 49 Year
  Sex: Female

DRUGS (1)
  1. ZOMETA [Suspect]
     Indication: OSTEOPOROSIS
     Dosage: 4 MG, ONCE/SINGLE
     Dates: start: 20060301, end: 20060301

REACTIONS (5)
  - CERVICAL SPINAL STENOSIS [None]
  - INFLUENZA LIKE ILLNESS [None]
  - KYPHOSIS [None]
  - NAUSEA [None]
  - NECK PAIN [None]
